FAERS Safety Report 4912681-4 (Version None)
Quarter: 2006Q1

REPORT INFORMATION
  Report Type: 
  Country: None (occurrence: None)
  Receive Date: 20060215
  Receipt Date: 20050823
  Transmission Date: 20060701
  Serious: Yes (Hospitalization, Other)
  Sender: FDA-Public Use
  Company Number: US-MERCK-0508USA03937

PATIENT
  Age: 69 Year
  Sex: Male
  Weight: 97 kg

DRUGS (10)
  1. VIOXX [Suspect]
     Indication: OSTEOARTHRITIS
     Route: 048
     Dates: start: 20040101, end: 20040901
  2. LASIX [Concomitant]
     Indication: HYPERTENSION
     Route: 065
     Dates: start: 20030101
  3. PLAVIX [Concomitant]
     Indication: ANTICOAGULANT THERAPY
     Route: 065
     Dates: start: 20030823
  4. ASPIRIN [Concomitant]
     Route: 065
     Dates: start: 20040106
  5. COREG [Concomitant]
     Route: 065
     Dates: start: 20030803
  6. KLOR-CON [Concomitant]
     Indication: BLOOD POTASSIUM
     Route: 065
  7. PROTONIX [Concomitant]
     Indication: ULCER
     Route: 065
     Dates: start: 20030823
  8. ALLOPURINOL [Concomitant]
     Indication: GOUT
     Route: 065
  9. ALTACE [Concomitant]
     Indication: HYPERTENSION
     Route: 065
     Dates: start: 20030802
  10. ZOCOR [Concomitant]
     Indication: BLOOD CHOLESTEROL
     Route: 065
     Dates: start: 20030823

REACTIONS (8)
  - ATELECTASIS [None]
  - CORONARY ARTERY DISEASE [None]
  - DYSPNOEA [None]
  - MUSCLE STRAIN [None]
  - MUSCULOSKELETAL CHEST PAIN [None]
  - MYOCARDIAL INFARCTION [None]
  - OCCULT BLOOD POSITIVE [None]
  - SKIN CANCER [None]
